FAERS Safety Report 8566593-8 (Version None)
Quarter: 2012Q3

REPORT INFORMATION
  Report Type: 
  Country: None (occurrence: None)
  Receive Date: 20120803
  Receipt Date: 20111024
  Transmission Date: 20120928
  Serious: No
  Sender: FDA-Public Use
  Company Number: US-ABBOTT-11P-163-0867583-00

PATIENT
  Sex: Male
  Weight: 104.42 kg

DRUGS (6)
  1. LIPITOR [Concomitant]
     Indication: PRODUCT USED FOR UNKNOWN INDICATION
  2. NIASPAN [Suspect]
     Indication: CORONARY ARTERY OCCLUSION
     Dates: start: 20100401
  3. NIASPAN [Suspect]
     Indication: LIPIDS ABNORMAL
  4. NIASPAN [Suspect]
  5. ASPIRIN [Concomitant]
     Indication: PRODUCT USED FOR UNKNOWN INDICATION
  6. PLAVIX [Concomitant]
     Indication: PRODUCT USED FOR UNKNOWN INDICATION

REACTIONS (5)
  - FEELING HOT [None]
  - ERYTHEMA [None]
  - BURNING SENSATION [None]
  - MEMORY IMPAIRMENT [None]
  - FLUSHING [None]
